FAERS Safety Report 24648615 (Version 1)
Quarter: 2024Q4

REPORT INFORMATION
  Report Type: Spontaneous
  Country: US (occurrence: US)
  Receive Date: 20241121
  Receipt Date: 20241121
  Transmission Date: 20250115
  Serious: No
  Sender: ALVOGEN
  Company Number: US-ALVOGEN-2024092966

PATIENT
  Sex: Female

DRUGS (2)
  1. TERIPARATIDE [Suspect]
     Active Substance: TERIPARATIDE
     Indication: Osteoporosis
     Dosage: 620MCG/2.48 ML (250 MCG/ML)?20 MCG PER DOSE?EXPIRATION DATE: UU-SEP-2024
     Route: 058
  2. TERIPARATIDE [Suspect]
     Active Substance: TERIPARATIDE
     Indication: Osteoporosis
     Dosage: PATIENT HAD BEEN USING THE PEN FOR A YEAR
     Route: 058

REACTIONS (2)
  - Device malfunction [Unknown]
  - Device operational issue [Unknown]

NARRATIVE: CASE EVENT DATE: 20240101
